FAERS Safety Report 18916229 (Version 1)
Quarter: 2021Q1

REPORT INFORMATION
  Report Type: Spontaneous
  Country: US (occurrence: US)
  Receive Date: 20210218
  Receipt Date: 20210218
  Transmission Date: 20210420
  Serious: No
  Sender: FDA-Public Use
  Company Number: US-ALKEM LABORATORIES LIMITED-US-ALKEM-2020-00881

PATIENT
  Age: 75 Year
  Sex: Female

DRUGS (9)
  1. TEMOZOLOMIDE. [Suspect]
     Active Substance: TEMOZOLOMIDE
     Indication: DISEASE PROGRESSION
  2. TEMOZOLOMIDE. [Suspect]
     Active Substance: TEMOZOLOMIDE
     Indication: GLIOMA
     Dosage: UNK
     Route: 065
  3. LINEZOLID. [Suspect]
     Active Substance: LINEZOLID
     Indication: NOCARDIOSIS
  4. CILASTATIN, IMIPENEM [Concomitant]
     Active Substance: CILASTATIN SODIUM\IMIPENEM
     Indication: BRAIN ABSCESS
  5. LINEZOLID. [Suspect]
     Active Substance: LINEZOLID
     Indication: BRAIN ABSCESS
     Dosage: 600 MILLIGRAM, BID
     Route: 048
  6. SULFAMETHOXAZOLE, TRIMETHOPRIM [Concomitant]
     Active Substance: SULFAMETHOXAZOLE\TRIMETHOPRIM
     Indication: ANTIFUNGAL PROPHYLAXIS
     Dosage: UNK
     Route: 065
  7. CILASTATIN, IMIPENEM [Concomitant]
     Active Substance: CILASTATIN SODIUM\IMIPENEM
     Indication: NOCARDIOSIS
     Dosage: 500 MILLIGRAM, QID
     Route: 042
  8. DEXAMETHASONE. [Concomitant]
     Active Substance: DEXAMETHASONE
     Indication: DISEASE PROGRESSION
     Dosage: 2 MILLIGRAM, QD
     Route: 048
  9. DEXAMETHASONE. [Concomitant]
     Active Substance: DEXAMETHASONE
     Indication: GLIOMA
     Dosage: 1 MILLIGRAM, QD
     Route: 048

REACTIONS (2)
  - Nausea [Unknown]
  - Vomiting [Unknown]
